FAERS Safety Report 7818365-7 (Version None)
Quarter: 2011Q4

REPORT INFORMATION
  Report Type: 
  Country: None (occurrence: None)
  Receive Date: 20111017
  Receipt Date: 20111012
  Transmission Date: 20120403
  Serious: Yes (Other)
  Sender: FDA-Public Use
  Company Number: CHPA2011US14077

PATIENT
  Age: 71 Year
  Sex: Male

DRUGS (1)
  1. THERAFLU WARMING RELIEF COLD + CHEST CONG [Suspect]
     Indication: COUGH
     Dosage: SIPS OUT OF THE BOTTLE
     Route: 048
     Dates: start: 20090101

REACTIONS (4)
  - WRONG TECHNIQUE IN DRUG USAGE PROCESS [None]
  - CARDIAC PACEMAKER INSERTION [None]
  - CARDIAC PACEMAKER REMOVAL [None]
  - MEDICAL DEVICE COMPLICATION [None]
